FAERS Safety Report 21269776 (Version 1)
Quarter: 2022Q3

REPORT INFORMATION
  Report Type: Spontaneous
  Country: US (occurrence: US)
  Receive Date: 20220830
  Receipt Date: 20220830
  Transmission Date: 20221027
  Serious: No
  Sender: FDA-Public Use
  Company Number: US-BEH-2022148983

PATIENT
  Sex: Female

DRUGS (19)
  1. HIZENTRA [Suspect]
     Active Substance: HUMAN IMMUNOGLOBULIN G
     Indication: Immunodeficiency common variable
     Dosage: 12 GRAM, QW
     Route: 058
  2. OMEPRAZOLE [Concomitant]
     Active Substance: OMEPRAZOLE
  3. DOXYCYCLINE [Concomitant]
     Active Substance: DOXYCYCLINE
  4. MUCINEX [Concomitant]
     Active Substance: GUAIFENESIN
  5. PREDNISONE [Concomitant]
     Active Substance: PREDNISONE
  6. TYLENOL WITH CODEINE [Concomitant]
     Active Substance: ACETAMINOPHEN\CODEINE PHOSPHATE
  7. ALBUTEROL SULFATE [Concomitant]
     Active Substance: ALBUTEROL SULFATE
  8. AZITHROMYCIN [Concomitant]
     Active Substance: AZITHROMYCIN
  9. BUDESONIDE [Concomitant]
     Active Substance: BUDESONIDE
  10. IPRATROPIUM [Concomitant]
     Active Substance: IPRATROPIUM
  11. LOSARTAN POTASSIUM [Concomitant]
     Active Substance: LOSARTAN POTASSIUM
  12. VITAMINS NOS [Concomitant]
     Active Substance: VITAMINS
  13. NORVASC [Concomitant]
     Active Substance: AMLODIPINE BESYLATE
  14. PERFOROMIST [Concomitant]
     Active Substance: FORMOTEROL FUMARATE DIHYDRATE
  15. SUCRALFATE [Concomitant]
     Active Substance: SUCRALFATE
  16. OMEPRAZOLE [Concomitant]
     Active Substance: OMEPRAZOLE
  17. SERTRALINE HYDROCHLORIDE [Concomitant]
     Active Substance: SERTRALINE HYDROCHLORIDE
  18. SPIRIVA [Concomitant]
     Active Substance: TIOTROPIUM BROMIDE MONOHYDRATE
  19. TYLENOL [Concomitant]
     Active Substance: ACETAMINOPHEN

REACTIONS (3)
  - Urinary tract infection [Recovered/Resolved]
  - Tooth disorder [Recovered/Resolved]
  - Sinus disorder [Recovered/Resolved]
